FAERS Safety Report 4696393-0 (Version None)
Quarter: 2005Q2

REPORT INFORMATION
  Report Type: 
  Country: None (occurrence: None)
  Receive Date: 20050615
  Receipt Date: 20040528
  Transmission Date: 20051028
  Serious: Yes (Hospitalization)
  Sender: FDA-Public Use
  Company Number: 2005PL000016

PATIENT
  Age: 42 Year
  Sex: Male
  Weight: 56.3 kg

DRUGS (10)
  1. IMURAN [Suspect]
     Indication: PROPHYLAXIS AGAINST TRANSPLANT REJECTION
     Dosage: 25 MG;QD;PO
     Route: 048
     Dates: start: 19870901, end: 20040503
  2. ZYLOPRIM [Suspect]
     Dosage: PO
     Route: 048
     Dates: start: 20030605, end: 20040506
  3. EPOETIN ALFA [Concomitant]
  4. CYCLOSPRONE [Concomitant]
  5. PREDNISONE TAB [Concomitant]
  6. VERAPAMIL [Concomitant]
  7. FUROSEMIDE [Concomitant]
  8. ALENDRONATE SODIUM [Concomitant]
  9. SERTRALINE HYDROCHLORIDE [Concomitant]
  10. VENLAFAXINE HCL [Concomitant]

REACTIONS (1)
  - BONE MARROW DEPRESSION [None]
